FAERS Safety Report 12137189 (Version 1)
Quarter: 2016Q1

REPORT INFORMATION
  Report Type: Spontaneous
  Country: US (occurrence: US)
  Receive Date: 20160302
  Receipt Date: 20160302
  Transmission Date: 20160526
  Serious: No
  Sender: FDA-Public Use
  Company Number: US-INSYS THERAPEUTICS, INC-INS201509-000412

PATIENT
  Age: 47 Year
  Sex: Male
  Weight: 104.33 kg

DRUGS (5)
  1. SUBSYS [Suspect]
     Active Substance: FENTANYL
  2. XONEPEX [Concomitant]
     Indication: ASTHMA
  3. OXYCODONE [Concomitant]
     Active Substance: OXYCODONE
     Indication: BACK PAIN
  4. SINGULAIR [Concomitant]
     Active Substance: MONTELUKAST SODIUM
     Indication: ASTHMA
  5. SUBSYS [Suspect]
     Active Substance: FENTANYL
     Indication: BREAKTHROUGH PAIN

REACTIONS (4)
  - Somnolence [Unknown]
  - Drug intolerance [Unknown]
  - Product quality issue [Unknown]
  - Off label use [Unknown]
